FAERS Safety Report 12614045 (Version 2)
Quarter: 2016Q3

REPORT INFORMATION
  Report Type: Spontaneous
  Country: US (occurrence: US)
  Receive Date: 20160802
  Receipt Date: 20160803
  Transmission Date: 20161109
  Serious: No
  Sender: FDA-Public Use
  Company Number: US-PFIZER INC-2016368639

PATIENT
  Age: 67 Year
  Sex: Male
  Weight: 81.65 kg

DRUGS (2)
  1. LYRICA [Suspect]
     Active Substance: PREGABALIN
     Indication: FIBROMYALGIA
     Dosage: 100 MG, 3X/DAY
     Route: 048
  2. LYRICA [Suspect]
     Active Substance: PREGABALIN
     Indication: DIABETIC NEUROPATHY
     Dosage: 100 MG, 1X/DAY
     Route: 048
     Dates: end: 20160723

REACTIONS (7)
  - Fatigue [Recovering/Resolving]
  - Condition aggravated [Recovering/Resolving]
  - Asthenia [Recovering/Resolving]
  - Fibromyalgia [Recovering/Resolving]
  - Malaise [Recovering/Resolving]
  - Intentional product use issue [Recovered/Resolved]
  - Withdrawal syndrome [Unknown]

NARRATIVE: CASE EVENT DATE: 20160725
